FAERS Safety Report 5915233-2 (Version None)
Quarter: 2008Q4

REPORT INFORMATION
  Report Type: 
  Country: None (occurrence: None)
  Receive Date: 20081010
  Receipt Date: 20080930
  Transmission Date: 20090506
  Serious: Yes (Hospitalization, Disabling)
  Sender: FDA-Public Use
  Company Number: US-MERCK-0804USA06240

PATIENT
  Age: 73 Year
  Sex: Female
  Weight: 50 kg

DRUGS (3)
  1. FOSAMAX [Suspect]
     Indication: OSTEOPOROSIS
     Route: 048
     Dates: start: 19990101, end: 20061001
  2. FOSAMAX [Suspect]
     Route: 048
     Dates: start: 20000701, end: 20060919
  3. HYDROCHLOROTHIAZIDE [Concomitant]
     Indication: OEDEMA
     Route: 065
     Dates: start: 19990101

REACTIONS (14)
  - BLOOD CHOLESTEROL INCREASED [None]
  - BONE DISORDER [None]
  - CEREBROVASCULAR ACCIDENT [None]
  - CONSTIPATION [None]
  - DENTAL CARIES [None]
  - DIZZINESS [None]
  - GAIT DISTURBANCE [None]
  - GINGIVAL DISORDER [None]
  - HYPERTENSION [None]
  - JAW DISORDER [None]
  - MEMORY IMPAIRMENT [None]
  - MUSCULAR WEAKNESS [None]
  - ORAL INFECTION [None]
  - OSTEONECROSIS [None]
